FAERS Safety Report 16240786 (Version 2)
Quarter: 2019Q4

REPORT INFORMATION
  Report Type: Spontaneous
  Country: US (occurrence: US)
  Receive Date: 20190425
  Receipt Date: 20191029
  Transmission Date: 20200122
  Serious: Yes (Other)
  Sender: FDA-Public Use
  Company Number: US-ASTRAZENECA-2019SE09376

PATIENT
  Sex: Female
  Weight: 83.5 kg

DRUGS (15)
  1. MELOXICAM. [Concomitant]
     Active Substance: MELOXICAM
  2. MEPERIDINE [Concomitant]
     Active Substance: MEPERIDINE
  3. NITROFURANTOIN. [Concomitant]
     Active Substance: NITROFURANTOIN
  4. VALSARTAN. [Concomitant]
     Active Substance: VALSARTAN
  5. DIOVAN [Concomitant]
     Active Substance: VALSARTAN
  6. METRONIDAZOLE. [Concomitant]
     Active Substance: METRONIDAZOLE
  7. MUPIROCIN. [Concomitant]
     Active Substance: MUPIROCIN
  8. ALPRAZOLAM. [Concomitant]
     Active Substance: ALPRAZOLAM
  9. ATENOLOL. [Concomitant]
     Active Substance: ATENOLOL
  10. TRIAMTERENE. [Concomitant]
     Active Substance: TRIAMTERENE
  11. TETRACYCLINE [Concomitant]
     Active Substance: TETRACYCLINE
  12. NEXIUM [Suspect]
     Active Substance: ESOMEPRAZOLE MAGNESIUM
     Route: 048
  13. ALPRAZOLAM. [Concomitant]
     Active Substance: ALPRAZOLAM
  14. OMEPRAZOLE. [Concomitant]
     Active Substance: OMEPRAZOLE
  15. LEVOFLOXACIN. [Concomitant]
     Active Substance: LEVOFLOXACIN

REACTIONS (3)
  - Rebound acid hypersecretion [Unknown]
  - Chronic kidney disease [Unknown]
  - Renal failure [Unknown]
